FAERS Safety Report 9964080 (Version 1)
Quarter: 2014Q1

REPORT INFORMATION
  Report Type: Report from Study
  Country: NO (occurrence: NO)
  Receive Date: 20140305
  Receipt Date: 20140305
  Transmission Date: 20141002
  Serious: Yes (Hospitalization)
  Sender: FDA-Public Use
  Company Number: NO-RB-062136-13

PATIENT
  Age: 24 Year
  Sex: Male

DRUGS (16)
  1. SUBOXONE UNSPECIFIED [Suspect]
     Dosage: AT THE TIME THE QUESTIONNAIRE WAS COMPLETED, HE HAD BEEN ON SUBOXONE FOR 1 MONTH.
     Route: 065
  2. SUBOXONE UNSPECIFIED [Suspect]
     Indication: DRUG DEPENDENCE
     Dosage: DOSING DETAILS UNKNOWN; INJECTED
     Route: 042
  3. SUBOXONE UNSPECIFIED [Suspect]
     Dosage: DOSING DETAILS UNKNOWN; SNORTED
     Route: 045
  4. SUBOXONE UNSPECIFIED [Suspect]
     Dosage: DOSING DETAILS UNKNOWN
     Route: 048
  5. SUBUTEX [Suspect]
     Indication: PRODUCT USED FOR UNKNOWN INDICATION
     Dosage: DOSING DETAILS UNKNOWN; INJECTED
     Route: 042
  6. SUBUTEX [Suspect]
     Dosage: DOSING DETAILS UNKNOWN; SNORTED
     Route: 045
  7. HEROIN [Suspect]
     Indication: PRODUCT USED FOR UNKNOWN INDICATION
     Dosage: DOSING DETAILS UNKNOWN; INJECTED
     Route: 042
  8. COCAINE [Suspect]
     Indication: PRODUCT USED FOR UNKNOWN INDICATION
     Dosage: DOSING DETAILS UNKNOWN; SMOKED
     Route: 055
  9. TETRAHYDROCANNABINOL [Suspect]
     Indication: PRODUCT USED FOR UNKNOWN INDICATION
     Dosage: DOSING DETAILS UNKNOWN; SMOKED
     Route: 055
  10. ECSTASY [Suspect]
     Indication: PRODUCT USED FOR UNKNOWN INDICATION
     Dosage: DOSING DETAILS UNKNOWN; INJECTED
     Route: 042
  11. ECSTASY [Suspect]
     Dosage: DOSING DETAILS UNKNOWN
     Route: 048
  12. AMPHETAMINE [Suspect]
     Indication: PRODUCT USED FOR UNKNOWN INDICATION
     Dosage: DOSING DETAILS UNKNOWN; INJECTED
     Route: 042
  13. AMPHETAMINE [Suspect]
     Dosage: DOSING DETAILS UNKNOWN; SMOKED
     Route: 055
  14. AMPHETAMINE [Suspect]
     Dosage: DOSING DETAILS UNKNOWN
     Route: 048
  15. BENZODIAZEPINES [Suspect]
     Indication: PRODUCT USED FOR UNKNOWN INDICATION
     Dosage: DOSING DETAILS UNKNOWN
     Route: 048
  16. BENZODIAZEPINES [Suspect]
     Dosage: DOSING DETAILS UNKNOWN; SMOKED
     Route: 055

REACTIONS (5)
  - Investigation [Unknown]
  - Drug abuse [Unknown]
  - Intentional drug misuse [Unknown]
  - Dissociation [Unknown]
  - Substance abuse [Unknown]
